FAERS Safety Report 25532672 (Version 1)
Quarter: 2025Q3

REPORT INFORMATION
  Report Type: Spontaneous
  Country: US (occurrence: US)
  Receive Date: 20250709
  Receipt Date: 20250709
  Transmission Date: 20251020
  Serious: No
  Sender: SCYNEXIS, INC.
  Company Number: US-GSKCCFUS-Case-02079247_AE-114956

PATIENT

DRUGS (1)
  1. BREXAFEMME [Suspect]
     Active Substance: IBREXAFUNGERP CITRATE
     Indication: Product used for unknown indication
     Route: 048

REACTIONS (2)
  - Product dispensing error [Unknown]
  - Recalled product administered [Unknown]
